APPROVED DRUG PRODUCT: TIAZAC
Active Ingredient: DILTIAZEM HYDROCHLORIDE
Strength: 420MG
Dosage Form/Route: CAPSULE, EXTENDED RELEASE;ORAL
Application: N020401 | Product #006 | TE Code: AB4
Applicant: BAUSCH HEALTH US LLC
Approved: Oct 16, 1998 | RLD: Yes | RS: Yes | Type: RX